FAERS Safety Report 16709333 (Version 1)
Quarter: 2019Q3

REPORT INFORMATION
  Report Type: Spontaneous
  Country: GB (occurrence: GB)
  Receive Date: 20190816
  Receipt Date: 20190816
  Transmission Date: 20191004
  Serious: Yes (Other)
  Sender: FDA-Public Use
  Company Number: GB-TEVA-2019-GB-1091899

PATIENT
  Age: 76 Year
  Sex: Female
  Weight: 70 kg

DRUGS (17)
  1. ATENOLOL. [Concomitant]
     Active Substance: ATENOLOL
     Dates: start: 20190415
  2. NICOTINE. [Concomitant]
     Active Substance: NICOTINE
     Dosage: TO THE SKIN AND REMO...
     Route: 062
     Dates: start: 20190429, end: 20190429
  3. LANSOPRAZOLE. [Concomitant]
     Active Substance: LANSOPRAZOLE
     Dates: start: 20190415
  4. PREGABALIN. [Suspect]
     Active Substance: PREGABALIN
     Dates: start: 20190417
  5. AMITRIPTYLINE HYDROCHLORIDE. [Concomitant]
     Active Substance: AMITRIPTYLINE HYDROCHLORIDE
     Dosage: AT NIGHT
     Dates: start: 20190417
  6. BENDROFLUMETHIAZIDE [Concomitant]
     Active Substance: BENDROFLUMETHIAZIDE
     Dates: start: 20190415, end: 20190523
  7. PARACETAMOL [Concomitant]
     Active Substance: ACETAMINOPHEN
     Dates: start: 20190417
  8. DULOXETINE. [Concomitant]
     Active Substance: DULOXETINE
     Dosage: EACH NIGHT
     Dates: start: 20190415, end: 20190520
  9. SIMVASTATIN. [Concomitant]
     Active Substance: SIMVASTATIN
     Dosage: AT NIGHT
     Dates: start: 20190415, end: 20190513
  10. CITALOPRAM [Concomitant]
     Active Substance: CITALOPRAM HYDROBROMIDE
     Dates: start: 20190502, end: 20190530
  11. CALCI-D [Concomitant]
     Active Substance: CALCIUM CARBONATE\CHOLECALCIFEROL
     Dates: start: 20190415
  12. BUPRENORPHINE. [Concomitant]
     Active Substance: BUPRENORPHINE
     Dosage: TO THE SKIN EVERY 7 DAYS AND TH...
     Route: 062
     Dates: start: 20190418, end: 20190516
  13. CLOPIDOGREL [Concomitant]
     Active Substance: CLOPIDOGREL BISULFATE
     Dates: start: 20190416
  14. CASSIA [Concomitant]
     Dosage: TAKE ONE OR TWO AT NIGHT
     Dates: start: 20190613
  15. ATORVASTATIN [Concomitant]
     Active Substance: ATORVASTATIN
     Dates: start: 20190417
  16. IBUPROFEN. [Concomitant]
     Active Substance: IBUPROFEN
     Dosage: WITH OR JUST AFTER FOOD
     Dates: start: 20190613, end: 20190711
  17. DOCUSATE SODIUM. [Concomitant]
     Active Substance: DOCUSATE SODIUM
     Dosage: TAKE UP TO 1-2 TWICE DAILY
     Dates: start: 20190415

REACTIONS (2)
  - Oedema peripheral [Recovered/Resolved]
  - Somnolence [Recovered/Resolved]
